FAERS Safety Report 6228174-0 (Version None)
Quarter: 2009Q2

REPORT INFORMATION
  Report Type: 
  Country: None (occurrence: None)
  Receive Date: 20090612
  Receipt Date: 20090605
  Transmission Date: 20091009
  Serious: Yes (Other)
  Sender: FDA-Public Use
  Company Number: US-JNJCH-2009015782

PATIENT
  Age: 68 Year
  Sex: Female
  Weight: 68.9 kg

DRUGS (1)
  1. ZYRTEC RX [Suspect]
     Indication: PRURITUS
     Dosage: TEXT:ONE-HALF TABLET DAILY
     Route: 048

REACTIONS (2)
  - LIVER DISORDER [None]
  - SOMNOLENCE [None]
